FAERS Safety Report 6327827-3 (Version None)
Quarter: 2009Q3

REPORT INFORMATION
  Report Type: 
  Country: None (occurrence: None)
  Receive Date: 20090819
  Receipt Date: 20090804
  Transmission Date: 20100115
  Serious: Yes (Hospitalization)
  Sender: FDA-Public Use
  Company Number: GAM-117-09-AU

PATIENT
  Age: 58 Year
  Sex: Female

DRUGS (1)
  1. OCTAGAM [Suspect]
     Indication: DRUG USE FOR UNKNOWN INDICATION
     Dosage: I.V.
     Route: 042
     Dates: end: 20090802

REACTIONS (2)
  - NEUTROPENIA [None]
  - WHITE BLOOD CELL COUNT DECREASED [None]
